FAERS Safety Report 5723783-7 (Version None)
Quarter: 2008Q2

REPORT INFORMATION
  Report Type: 
  Country: None (occurrence: None)
  Receive Date: 20080430
  Receipt Date: 20080418
  Transmission Date: 20081010
  Serious: Yes (Other)
  Sender: FDA-Public Use
  Company Number: SG-RB-000764-08

PATIENT
  Age: 29 Year
  Sex: Male

DRUGS (1)
  1. SUBUTEX [Suspect]
     Indication: DRUG USE FOR UNKNOWN INDICATION
     Dosage: DOSAGE UNKNOWN
     Route: 042
     Dates: start: 20050101

REACTIONS (2)
  - SUBSTANCE ABUSE [None]
  - ULNAR NERVE INJURY [None]
